FAERS Safety Report 11682633 (Version 1)
Quarter: 2015Q4

REPORT INFORMATION
  Report Type: Spontaneous
  Country: US (occurrence: US)
  Receive Date: 20151029
  Receipt Date: 20151029
  Transmission Date: 20160304
  Serious: Yes (Other)
  Sender: FDA-Public Use
  Company Number: US-PFIZER INC-2015359752

PATIENT
  Age: 54 Year
  Sex: Male
  Weight: 91 kg

DRUGS (2)
  1. VIAGRA [Suspect]
     Active Substance: SILDENAFIL CITRATE
     Dosage: 100 MG, UNK
  2. VIAGRA [Interacting]
     Active Substance: SILDENAFIL CITRATE
     Dosage: 150 MG, UNK

REACTIONS (11)
  - Erection increased [Unknown]
  - Vision blurred [Not Recovered/Not Resolved]
  - Cyanopsia [Not Recovered/Not Resolved]
  - Intentional product use issue [Unknown]
  - Fatigue [Unknown]
  - Pain [Unknown]
  - Alcohol interaction [Unknown]
  - Aggression [Unknown]
  - Dry mouth [Unknown]
  - Disturbance in sexual arousal [Unknown]
  - Tinnitus [Not Recovered/Not Resolved]
